FAERS Safety Report 5657070-2 (Version None)
Quarter: 2008Q1

REPORT INFORMATION
  Report Type: 
  Country: None (occurrence: None)
  Receive Date: 20080310
  Receipt Date: 20080226
  Transmission Date: 20080703
  Serious: Yes (Death, Other)
  Sender: FDA-Public Use
  Company Number: US-ROCHE-551092

PATIENT
  Age: 57 Year
  Sex: Male

DRUGS (4)
  1. INTERFERON ALFA [Suspect]
     Route: 058
  2. INTERFERON ALFA [Suspect]
     Dosage: 9 DOSES
     Route: 058
  3. PROLEUKIN [Concomitant]
  4. INTERFERON GAMMA [Concomitant]

REACTIONS (2)
  - METASTATIC MALIGNANT MELANOMA [None]
  - RETINOPATHY [None]
